FAERS Safety Report 9888743 (Version 2)
Quarter: 2014Q1

REPORT INFORMATION
  Report Type: Spontaneous
  Country: BR (occurrence: BR)
  Receive Date: 20140211
  Receipt Date: 20140226
  Transmission Date: 20141002
  Serious: Yes (Life-Threatening, Hospitalization)
  Sender: FDA-Public Use
  Company Number: BR-BRISTOL-MYERS SQUIBB COMPANY-20167409

PATIENT
  Age: 78 Year
  Sex: Male
  Weight: 76.2 kg

DRUGS (1)
  1. YERVOY [Suspect]
     Indication: MELANOMA RECURRENT
     Dosage: 230MG, 4 DOSES EVERY 21 DAYS
     Dates: start: 20140124

REACTIONS (1)
  - Myocardial infarction [Recovered/Resolved]
